FAERS Safety Report 17344828 (Version 1)
Quarter: 2020Q1

REPORT INFORMATION
  Report Type: Spontaneous
  Country: US (occurrence: US)
  Receive Date: 20200129
  Receipt Date: 20200129
  Transmission Date: 20200409
  Serious: No
  Sender: FDA-Public Use
  Company Number: US-ALLERGAN-1945049US

PATIENT
  Sex: Female
  Weight: 58.9 kg

DRUGS (3)
  1. BOTOX [Suspect]
     Active Substance: ONABOTULINUMTOXINA
     Dosage: UNK, SINGLE
     Dates: start: 20191025, end: 20191025
  2. BOTOX [Suspect]
     Active Substance: ONABOTULINUMTOXINA
     Indication: MUSCLE SPASMS
     Dosage: 40 UNITS, SINGLE
     Dates: start: 20191025, end: 20191025
  3. BOTOX [Suspect]
     Active Substance: ONABOTULINUMTOXINA
     Dosage: 40 UNITS, SINGLE
     Dates: start: 20191025, end: 20191025

REACTIONS (3)
  - Therapeutic response decreased [Unknown]
  - Muscle twitching [Unknown]
  - Off label use [Unknown]
